FAERS Safety Report 4921735-8 (Version None)
Quarter: 2006Q1

REPORT INFORMATION
  Report Type: 
  Country: None (occurrence: None)
  Receive Date: 20060224
  Receipt Date: 20050603
  Transmission Date: 20060701
  Serious: No
  Sender: FDA-Public Use
  Company Number: US-BRISTOL-MYERS SQUIBB COMPANY-12998001

PATIENT
  Age: 33 Year
  Sex: Female

DRUGS (4)
  1. MONISTAT 1 COMBINATION PACK [Suspect]
     Indication: VULVOVAGINAL MYCOTIC INFECTION
     Route: 067
     Dates: start: 20050603, end: 20050603
  2. CONTRACEPTIVE [Concomitant]
     Route: 048
  3. DURATUSS [Concomitant]
  4. ZYRTEC [Concomitant]

REACTIONS (2)
  - GENITAL BURNING SENSATION [None]
  - OEDEMA GENITAL [None]
